FAERS Safety Report 11076030 (Version 1)
Quarter: 2015Q2

REPORT INFORMATION
  Report Type: Spontaneous
  Country: SE (occurrence: SE)
  Receive Date: 20150429
  Receipt Date: 20150429
  Transmission Date: 20150821
  Serious: Yes (Other)
  Sender: FDA-Public Use
  Company Number: SE-ALLERGAN-1502546US

PATIENT
  Age: 28 Year
  Sex: Male

DRUGS (5)
  1. COSOPT [Concomitant]
     Active Substance: DORZOLAMIDE HYDROCHLORIDE\TIMOLOL MALEATE
     Indication: INTRAOCULAR PRESSURE INCREASED
  2. DIAMOX                             /00016901/ [Concomitant]
     Active Substance: ACETAZOLAMIDE
     Indication: BLOOD PRESSURE INCREASED
  3. PILOCARPINE EYE DROPS [Concomitant]
     Dosage: IN PERIODS
  4. OZURDEX [Suspect]
     Active Substance: DEXAMETHASONE
     Indication: UVEITIS
     Dosage: 0.7 MG, SINGLE
     Route: 031
     Dates: start: 20141229
  5. IOPIDINE                           /00948501/ [Concomitant]
     Indication: INTRAOCULAR PRESSURE INCREASED

REACTIONS (8)
  - Choroidal detachment [Recovered/Resolved]
  - Eye haemorrhage [Recovered/Resolved]
  - Eye pain [Unknown]
  - Glaucoma surgery [Unknown]
  - Intraocular pressure increased [Recovered/Resolved]
  - Injection site extravasation [None]
  - Vitreous loss [Recovered/Resolved]
  - Intraocular pressure decreased [Recovered/Resolved]

NARRATIVE: CASE EVENT DATE: 20141231
